FAERS Safety Report 4679379-1 (Version None)
Quarter: 2005Q2

REPORT INFORMATION
  Report Type: 
  Country: None (occurrence: None)
  Receive Date: 20050602
  Receipt Date: 20050521
  Transmission Date: 20051028
  Serious: Yes (Disabling, Other)
  Sender: FDA-Public Use
  Company Number: GB-GLAXOSMITHKLINE-B0381871A

PATIENT
  Age: 36 Year
  Sex: Male
  Weight: 6 kg

DRUGS (4)
  1. ZYBAN [Suspect]
     Indication: SMOKING CESSATION THERAPY
     Route: 048
     Dates: start: 20050207, end: 20050328
  2. ACITRETIN [Concomitant]
     Indication: PSORIASIS
     Dosage: 50MG PER DAY
     Route: 065
     Dates: start: 20020620
  3. CYCLOSPORINE [Concomitant]
     Indication: PSORIASIS
     Dosage: 400MG PER DAY
     Route: 065
     Dates: start: 20031124
  4. AMLODIPINE [Concomitant]
     Indication: HYPERTENSION
     Dosage: 10MG PER DAY
     Route: 065
     Dates: start: 20040521

REACTIONS (2)
  - EMOTIONAL DISTRESS [None]
  - PSORIASIS [None]
